FAERS Safety Report 21135906 (Version 2)
Quarter: 2023Q1

REPORT INFORMATION
  Report Type: Spontaneous
  Country: JP (occurrence: JP)
  Receive Date: 20220727
  Receipt Date: 20230126
  Transmission Date: 20230418
  Serious: Yes (Hospitalization, Other)
  Sender: FDA-Public Use
  Company Number: JP-ASTELLAS-2022JP011145

PATIENT
  Sex: Male
  Weight: 1.856 kg

DRUGS (12)
  1. PROGRAF [Suspect]
     Active Substance: TACROLIMUS
     Indication: Systemic lupus erythematosus
     Dosage: 3 MG/DAY, UNKNOWN FREQ.
     Route: 064
  2. PREDNISOLONE [Concomitant]
     Active Substance: PREDNISOLONE
     Indication: Systemic lupus erythematosus
     Dosage: 45 MG/DAY, UNKNOWN FREQ.
     Route: 064
  3. PREDNISOLONE [Concomitant]
     Active Substance: PREDNISOLONE
     Dosage: UNK UNK, UNKNOWN FREQ.
     Route: 064
  4. PREDNISOLONE [Concomitant]
     Active Substance: PREDNISOLONE
     Dosage: 17 MG/DAY, UNKNOWN FREQ.
     Route: 064
  5. PREDNISOLONE [Concomitant]
     Active Substance: PREDNISOLONE
     Dosage: 12.5 MG/DAY, UNKNOWN FREQ.
     Route: 064
  6. PREDNISOLONE [Concomitant]
     Active Substance: PREDNISOLONE
     Dosage: 15 MG/DAY, UNKNOWN FREQ.
     Route: 064
  7. PREDNISOLONE [Concomitant]
     Active Substance: PREDNISOLONE
     Dosage: 20 MG/DAY, UNKNOWN FREQ.
     Route: 064
  8. PREDNISOLONE [Concomitant]
     Active Substance: PREDNISOLONE
     Dosage: 40 MG/DAY, UNKNOWN FREQ.
     Route: 064
  9. ALFACALCIDOL [Concomitant]
     Active Substance: ALFACALCIDOL
     Indication: Osteoporosis
     Dosage: 0.5 UG/DAY, UNKNOWN FREQ.
     Route: 064
  10. HEPARIN CALCIUM [Concomitant]
     Active Substance: HEPARIN CALCIUM
     Indication: Antiphospholipid syndrome
     Dosage: 10000 IU/DAY, UNKNOWN FREQ.
     Route: 064
  11. ACETAMINOPHEN [Concomitant]
     Active Substance: ACETAMINOPHEN
     Indication: Pain management
     Dosage: UNK UNK, UNKNOWN FREQ.
     Route: 064
  12. PENTAZOCINE [Concomitant]
     Active Substance: PENTAZOCINE
     Indication: Pain
     Dosage: UNK UNK, UNKNOWN FREQ.
     Route: 064

REACTIONS (4)
  - Low birth weight baby [Unknown]
  - Premature baby [Unknown]
  - Foetal exposure during pregnancy [Unknown]
  - Exposure via breast milk [Unknown]
